FAERS Safety Report 8125638-X (Version None)
Quarter: 2012Q1

REPORT INFORMATION
  Report Type: 
  Country: None (occurrence: None)
  Receive Date: 20120209
  Receipt Date: 20120131
  Transmission Date: 20120608
  Serious: Yes (Death, Other)
  Sender: FDA-Public Use
  Company Number: JP-TEVA-320912ISR

PATIENT
  Age: 64 Year
  Sex: Male

DRUGS (2)
  1. CISPLATIN [Suspect]
     Indication: OESOPHAGEAL CARCINOMA
  2. FLUOROURACIL [Suspect]
     Indication: OESOPHAGEAL CARCINOMA

REACTIONS (4)
  - RADIATION PNEUMONITIS [None]
  - STOMATITIS [None]
  - DECREASED APPETITE [None]
  - SKIN HYPERPIGMENTATION [None]
